FAERS Safety Report 16321650 (Version 3)
Quarter: 2019Q2

REPORT INFORMATION
  Report Type: Report from Study
  Country: US (occurrence: US)
  Receive Date: 20190516
  Receipt Date: 20190524
  Transmission Date: 20190711
  Serious: No
  Sender: FDA-Public Use
  Company Number: PHEH2019US020570

PATIENT
  Sex: Female
  Weight: 24.82 kg

DRUGS (2)
  1. ILARIS [Suspect]
     Active Substance: CANAKINUMAB
     Indication: AUTOIMMUNE DISORDER
     Dosage: 50 MG (0.33 ML), Q4W
     Route: 058
  2. ILARIS [Suspect]
     Active Substance: CANAKINUMAB
     Indication: FAMILIAL MEDITERRANEAN FEVER

REACTIONS (1)
  - Injection site haemorrhage [Unknown]
